FAERS Safety Report 17631839 (Version 2)
Quarter: 2020Q2

REPORT INFORMATION
  Report Type: Spontaneous
  Country: FR (occurrence: FR)
  Receive Date: 20200406
  Receipt Date: 20200408
  Transmission Date: 20200713
  Serious: Yes (Hospitalization, Other)
  Sender: FDA-Public Use
  Company Number: FR-JNJFOC-20200345357

PATIENT
  Age: 59 Year
  Sex: Female

DRUGS (3)
  1. SYNVISC [Concomitant]
     Active Substance: HYLAN G-F 20
     Dosage: UNK
     Dates: start: 202001
  2. RIVAROXABAN [Suspect]
     Active Substance: RIVAROXABAN
     Indication: DEEP VEIN THROMBOSIS
     Dosage: 15 MG, BID
     Route: 048
     Dates: start: 2020
  3. BOOSTRIX TETRA [Concomitant]
     Active Substance: DIPHTHERIA AND TETANUS TOXOIDS AND ACELLULAR PERTUSSIS ADSORBED AND INACTIVATED POLIOVIRUS VACCINE
     Dosage: UNK
     Dates: start: 202002

REACTIONS (12)
  - Exercise tolerance decreased [Unknown]
  - Discomfort [Unknown]
  - Hospitalisation [Unknown]
  - Hyperhidrosis [Unknown]
  - Anxiety [Unknown]
  - Muscular weakness [Unknown]
  - Eating disorder [Unknown]
  - Serotonin syndrome [Unknown]
  - Tachycardia [Unknown]
  - Fatigue [Unknown]
  - Myalgia [Unknown]
  - Malaise [Unknown]

NARRATIVE: CASE EVENT DATE: 202003
